FAERS Safety Report 7687897-7 (Version None)
Quarter: 2011Q3

REPORT INFORMATION
  Report Type: 
  Country: None (occurrence: None)
  Receive Date: 20110817
  Receipt Date: 20110628
  Transmission Date: 20111222
  Serious: Yes (Death, Other)
  Sender: FDA-Public Use
  Company Number: JP-BAYER-2011-051664

PATIENT
  Age: 47 Year
  Sex: Female

DRUGS (4)
  1. SORAFENIB (RAF KINASE INHIBITOR) [Suspect]
     Indication: RENAL CELL CARCINOMA
     Dosage: UNK
     Dates: start: 20081224, end: 20091014
  2. ZOMETA [Concomitant]
     Dosage: 4 MG, QD
     Route: 042
  3. CANDESARTAN CILEXETIL [Concomitant]
     Dosage: 8 MG, QD
     Route: 048
     Dates: start: 20091007
  4. NORVASC [Concomitant]
     Dosage: 5 MG, QD
     Route: 048
     Dates: start: 20091007

REACTIONS (13)
  - ALOPECIA [None]
  - MALAISE [None]
  - DIARRHOEA [None]
  - HYPERTENSION [None]
  - HYPOCALCAEMIA [None]
  - LIPASE INCREASED [None]
  - PLATELET COUNT DECREASED [None]
  - RENAL CELL CARCINOMA [None]
  - PALMAR-PLANTAR ERYTHRODYSAESTHESIA SYNDROME [None]
  - HYPOPHOSPHATAEMIA [None]
  - ANAEMIA [None]
  - EXPOSED BONE IN JAW [None]
  - DYSPEPSIA [None]
